FAERS Safety Report 4888454-8 (Version None)
Quarter: 2005Q4

REPORT INFORMATION
  Report Type: 
  Country: None (occurrence: None)
  Receive Date: 20051221
  Receipt Date: 20050916
  Transmission Date: 20060501
  Serious: No
  Sender: FDA-Public Use
  Company Number: US-YAMANOUCHI-YPA20050486

PATIENT
  Age: 17 Year
  Sex: Female

DRUGS (2)
  1. VESICARE [Suspect]
     Indication: CYSTITIS INTERSTITIAL
     Dosage: 5 MG QD PO
     Route: 048
     Dates: start: 20050701
  2. URITACT [Concomitant]

REACTIONS (1)
  - CONSTIPATION [None]
